FAERS Safety Report 8831868 (Version 1)
Quarter: 2012Q4

REPORT INFORMATION
  Report Type: 
  Country: US (occurrence: US)
  Receive Date: 20121008
  Receipt Date: 20121008
  Transmission Date: 20130627
  Serious: Yes (Hospitalization, Other)
  Sender: FDA-Public Use
  Company Number: US-ELI_LILLY_AND_COMPANY-US201210001382

PATIENT
  Age: 72 Year
  Sex: Female

DRUGS (1)
  1. FORTEO [Suspect]
     Dosage: 20 ug, qd
     Route: 058
     Dates: start: 201203

REACTIONS (4)
  - Myocardial infarction [Unknown]
  - Myocardial infarction [Unknown]
  - Carotid artery occlusion [Unknown]
  - Eye disorder [Unknown]
